FAERS Safety Report 13103935 (Version 2)
Quarter: 2017Q2

REPORT INFORMATION
  Report Type: Spontaneous
  Country: US (occurrence: US)
  Receive Date: 20170111
  Receipt Date: 20170531
  Transmission Date: 20170830
  Serious: Yes (Other)
  Sender: FDA-Public Use
  Company Number: US-ASTRAZENECA-2017SE01424

PATIENT
  Age: 638 Month
  Sex: Male
  Weight: 123.1 kg

DRUGS (13)
  1. NEXIUM [Suspect]
     Active Substance: ESOMEPRAZOLE MAGNESIUM
     Dosage: 40.0MG UNKNOWN
     Route: 048
     Dates: start: 20161027
  2. FERROUS SULFATE. [Concomitant]
     Active Substance: FERROUS SULFATE
     Dosage: 325.0MG UNKNOWN
     Dates: start: 20050315
  3. GLYBURIDE. [Concomitant]
     Active Substance: GLYBURIDE
     Dosage: 2.5MG UNKNOWN
     Dates: start: 20051205
  4. NEXIUM [Suspect]
     Active Substance: ESOMEPRAZOLE MAGNESIUM
     Route: 048
     Dates: start: 2006, end: 2016
  5. NEXIUM [Suspect]
     Active Substance: ESOMEPRAZOLE MAGNESIUM
     Dosage: 40.0MG UNKNOWN
     Route: 048
     Dates: start: 20060612
  6. PROMETHAZINE [Concomitant]
     Active Substance: PROMETHAZINE\PROMETHAZINE HYDROCHLORIDE
     Dosage: 25.0MG UNKNOWN
     Dates: start: 20060303
  7. FUROSEMIDE. [Concomitant]
     Active Substance: FUROSEMIDE
     Dosage: 40.0MG UNKNOWN
     Dates: start: 20060503
  8. ALTACE [Concomitant]
     Active Substance: RAMIPRIL
     Dosage: 10.0MG UNKNOWN
     Dates: start: 20060802
  9. LIPITOR [Concomitant]
     Active Substance: ATORVASTATIN CALCIUM
     Dosage: 40.0MG UNKNOWN
     Dates: start: 20061121
  10. AVANDIA [Concomitant]
     Active Substance: ROSIGLITAZONE MALEATE
     Dosage: 4.0MG UNKNOWN
     Dates: start: 20070416
  11. ALPRAZOLAM. [Concomitant]
     Active Substance: ALPRAZOLAM
     Dosage: 0.5MG UNKNOWN
     Dates: start: 20050721
  12. SOTALOL. [Concomitant]
     Active Substance: SOTALOL
     Dosage: 80.0MG UNKNOWN
     Dates: start: 20051213
  13. CILOSTAZOL. [Concomitant]
     Active Substance: CILOSTAZOL
     Dosage: 100.0MG UNKNOWN
     Dates: start: 20050829

REACTIONS (1)
  - Chronic kidney disease [Unknown]

NARRATIVE: CASE EVENT DATE: 201012
